FAERS Safety Report 21661139 (Version 2)
Quarter: 2023Q2

REPORT INFORMATION
  Report Type: Spontaneous
  Country: US (occurrence: None)
  Receive Date: 20221130
  Receipt Date: 20230523
  Transmission Date: 20230721
  Serious: Yes (Other)
  Sender: FDA-Public Use
  Company Number: US-Emmaus Medical, Inc.-EMM202211-000293

PATIENT
  Sex: Female

DRUGS (4)
  1. ENDARI [Suspect]
     Active Substance: GLUTAMINE
     Indication: Thalassaemia sickle cell
     Dosage: 15 GM
     Route: 048
  2. ENDARI [Suspect]
     Active Substance: GLUTAMINE
     Indication: Sickle cell anaemia with crisis
     Dosage: 15 G
     Route: 048
     Dates: start: 202211
  3. ENDARI [Suspect]
     Active Substance: GLUTAMINE
     Indication: Thoracic radiculopathy
  4. ENDARI [Suspect]
     Active Substance: GLUTAMINE
     Indication: Anaemia

REACTIONS (4)
  - Hip surgery [Unknown]
  - Hip arthroplasty [Unknown]
  - Sickle cell anaemia with crisis [Unknown]
  - Product dose omission issue [Unknown]
